FAERS Safety Report 9973358 (Version 2)
Quarter: 2014Q1

REPORT INFORMATION
  Report Type: Spontaneous
  Country: PK (occurrence: PK)
  Receive Date: 20140306
  Receipt Date: 20140317
  Transmission Date: 20141002
  Serious: Yes (Death, Hospitalization)
  Sender: FDA-Public Use
  Company Number: PK-PFIZER INC-2014062669

PATIENT
  Age: 40 Year
  Sex: Female

DRUGS (2)
  1. SUTENT [Suspect]
     Indication: METASTATIC RENAL CELL CARCINOMA
     Dosage: 25 MG, 2X/DAY, FOR 3 MONTHS
     Route: 048
     Dates: start: 201306
  2. SUTENT [Suspect]
     Dosage: 25 MG, 1X/DAY, DURING THIRD CYCLE
     Dates: end: 201311

REACTIONS (2)
  - Cardiopulmonary failure [Fatal]
  - Erythema [Unknown]
